FAERS Safety Report 21570297 (Version 7)
Quarter: 2023Q1

REPORT INFORMATION
  Report Type: Spontaneous
  Country: US (occurrence: US)
  Receive Date: 20221109
  Receipt Date: 20230223
  Transmission Date: 20230417
  Serious: No
  Sender: FDA-Public Use
  Company Number: US-UNITED THERAPEUTICS-UNT-2022-026041

PATIENT
  Sex: Female
  Weight: 102.04 kg

DRUGS (23)
  1. REMODULIN [Suspect]
     Active Substance: TREPROSTINIL
     Indication: Pulmonary arterial hypertension
     Dosage: UNK, CONTINUING
     Route: 058
     Dates: start: 20221019
  2. REMODULIN [Suspect]
     Active Substance: TREPROSTINIL
     Dosage: 0.00265 ?G/KG (PHARMACY PRE-FILLED WITH 1.8ML PER CASSETTE AT PUMP RATE OF 16 MCL/HR), CONTINUING
     Route: 058
     Dates: start: 202210
  3. REMODULIN [Suspect]
     Active Substance: TREPROSTINIL
     Dosage: 0.00375 ?G/KG (PHARMACY PRE-FILLED WITH 2.8ML PER CASSETTE AT PUMP RATE OF 23 MCL/HR), CONTINUING
     Route: 058
     Dates: start: 2022
  4. REMODULIN [Suspect]
     Active Substance: TREPROSTINIL
     Indication: Pulmonary arterial hypertension
     Dosage: 0.00775 ?G/KG, CONTINUING (PHARMACY FILLED 2.4ML PER CASSETTE; PUMP RATE 19MCL PER HOUR)
     Route: 058
     Dates: start: 2022
  5. REMODULIN [Suspect]
     Active Substance: TREPROSTINIL
     Dosage: 0.01025 ?G/KG (PHARMACY FILL WITH 2.6ML PER CASSETTE AT A PUMP RATE OF 25MCL PER HOUR), CONTINUING
     Route: 058
     Dates: start: 2022
  6. REMODULIN [Suspect]
     Active Substance: TREPROSTINIL
     Dosage: 0.0115 ?G/KG, CONTINUING
     Route: 058
     Dates: start: 2022
  7. REMODULIN [Suspect]
     Active Substance: TREPROSTINIL
     Indication: Pulmonary arterial hypertension
     Dosage: 0.02025 ?G/KG (REMUNITY REMODULIN PHARMACY PRE-FILL WITH 2.6 ML PER CASSETTE. REMUNITY PUMP RATE OF
     Route: 058
  8. OXYGEN [Suspect]
     Active Substance: OXYGEN
     Indication: Dyspnoea
     Dosage: UNK
     Route: 065
     Dates: start: 2022
  9. OPSUMIT [Concomitant]
     Active Substance: MACITENTAN
     Indication: Product used for unknown indication
     Dosage: 10 MG, QD
     Route: 048
     Dates: start: 202209
  10. REVATIO [Concomitant]
     Active Substance: SILDENAFIL CITRATE
     Indication: Pulmonary hypertension
     Dosage: 40 MG, Q8H
     Route: 048
     Dates: start: 202209
  11. NORVASC [Concomitant]
     Active Substance: AMLODIPINE BESYLATE
     Indication: Hypertension
     Dosage: 5 MG, QD
     Route: 048
  12. VENTOLIN HFA [Concomitant]
     Active Substance: ALBUTEROL SULFATE
     Indication: Dyspnoea
     Dosage: 90 ?G, Q6H (AS NEEDED)
  13. LIPITOR [Concomitant]
     Active Substance: ATORVASTATIN CALCIUM
     Indication: Hypercholesterolaemia
     Dosage: 10 MG, QD
     Route: 048
  14. LIORESAL [Concomitant]
     Active Substance: BACLOFEN
     Indication: Product used for unknown indication
     Dosage: 10 MG, QHS (AT BED TIME)
     Route: 048
  15. FML [Concomitant]
     Active Substance: FLUOROMETHOLONE
     Indication: Product used for unknown indication
     Dosage: 1 DROP, Q4H
     Route: 047
  16. ADVAIR HFA [Concomitant]
     Active Substance: FLUTICASONE PROPIONATE\SALMETEROL XINAFOATE
     Indication: Product used for unknown indication
     Dosage: 1 PUFF INTO LUNGS, QD
  17. LASIX [Concomitant]
     Active Substance: FUROSEMIDE
     Indication: Product used for unknown indication
     Dosage: UNK (60 OR 80 MG), EVERY OTHER DAY
     Route: 048
  18. LASIX [Concomitant]
     Active Substance: FUROSEMIDE
     Dosage: 40 MG, BID (FOR 360 DAYS)
     Route: 048
     Dates: start: 20221206
  19. NEURONTIN [Concomitant]
     Active Substance: GABAPENTIN
     Indication: Product used for unknown indication
     Dosage: 600 MG
     Route: 048
  20. PREVACID [Concomitant]
     Active Substance: LANSOPRAZOLE
     Indication: Product used for unknown indication
     Dosage: 15 MG
     Route: 048
  21. ROXICODONE [Concomitant]
     Active Substance: OXYCODONE HYDROCHLORIDE
     Indication: Product used for unknown indication
     Dosage: 5 MG, QID (AS NEEDED)
     Route: 048
  22. OXYCONTIN [Concomitant]
     Active Substance: OXYCODONE HYDROCHLORIDE
     Indication: Product used for unknown indication
     Dosage: 15 MG, BID (AS NEEDED)
     Route: 048
  23. ZANAFLEX [Concomitant]
     Active Substance: TIZANIDINE HYDROCHLORIDE
     Indication: Product used for unknown indication
     Dosage: 2 MG, BID
     Route: 048

REACTIONS (9)
  - Rhinitis allergic [Not Recovered/Not Resolved]
  - Dyspnoea [Not Recovered/Not Resolved]
  - Infusion site haemorrhage [Recovered/Resolved]
  - Device maintenance issue [Unknown]
  - Infusion site erythema [Recovered/Resolved]
  - Infusion site swelling [Recovered/Resolved]
  - Injury associated with device [Recovered/Resolved]
  - Fatigue [Unknown]
  - Seasonal allergy [Unknown]

NARRATIVE: CASE EVENT DATE: 20220101
